FAERS Safety Report 21921616 (Version 2)
Quarter: 2023Q1

REPORT INFORMATION
  Report Type: Spontaneous
  Country: US (occurrence: US)
  Receive Date: 20230127
  Receipt Date: 20230221
  Transmission Date: 20230417
  Serious: Yes (Other)
  Sender: FDA-Public Use
  Company Number: US-ORGANON-O2301USA002154

PATIENT
  Age: 22 Year
  Sex: Female
  Weight: 95.238 kg

DRUGS (1)
  1. NEXPLANON [Suspect]
     Active Substance: ETONOGESTREL
     Indication: Contraception
     Dosage: 1 IMPLANT OF 68 MG FOR 3 YEARS IN THE LEFT UPPER ARM
     Route: 059
     Dates: start: 20220614

REACTIONS (4)
  - Weight decreased [Recovered/Resolved]
  - Amenorrhoea [Recovered/Resolved]
  - Polymenorrhoea [Not Recovered/Not Resolved]
  - Menstruation irregular [Recovered/Resolved]

NARRATIVE: CASE EVENT DATE: 20220601
